FAERS Safety Report 16075155 (Version 1)
Quarter: 2019Q1

REPORT INFORMATION
  Report Type: Spontaneous
  Country: US (occurrence: US)
  Receive Date: 20190315
  Receipt Date: 20190315
  Transmission Date: 20190418
  Serious: Yes (Hospitalization, Other)
  Sender: FDA-Public Use
  Company Number: US-TEVA-2019-US-1023042

PATIENT
  Age: 10 Month
  Sex: Male

DRUGS (4)
  1. SULFAMETHOXAZOLE/TRIMETHOPRIM [Concomitant]
     Active Substance: SULFAMETHOXAZOLE\TRIMETHOPRIM
     Route: 065
  2. CITRIC ACID [Concomitant]
     Active Substance: CITRIC ACID MONOHYDRATE
     Route: 065
  3. CLONIDINE. [Suspect]
     Active Substance: CLONIDINE
     Indication: OVERDOSE
     Dosage: .1 MILLIGRAM DAILY; TWO CLONIDINE PATCHES WERE USED INSTEAD OF SIMPLE ADHESIVE PATCH.
     Route: 065
  4. CYCLOSPORINE. [Suspect]
     Active Substance: CYCLOSPORINE
     Indication: IMMUNOSUPPRESSANT DRUG THERAPY
     Route: 065

REACTIONS (7)
  - Depressed level of consciousness [Recovered/Resolved]
  - Renal tubular acidosis [Unknown]
  - Mental status changes [Recovered/Resolved]
  - Intentional product misuse [Unknown]
  - Miosis [Recovered/Resolved]
  - Overdose [Unknown]
  - Lethargy [Recovered/Resolved]
